FAERS Safety Report 6355158-4 (Version None)
Quarter: 2009Q3

REPORT INFORMATION
  Report Type: 
  Country: None (occurrence: None)
  Receive Date: 20090914
  Receipt Date: 20090901
  Transmission Date: 20100115
  Serious: Yes (Other)
  Sender: FDA-Public Use
  Company Number: LK-MYLANLABS-2009S1015516

PATIENT
  Age: 53 Year
  Sex: Female

DRUGS (4)
  1. TERMINALIA CHEBULA [Interacting]
     Indication: BACK PAIN
     Dates: start: 20060501
  2. TRIPHALA CHURNA [Interacting]
     Indication: BACK PAIN
     Dates: start: 20060501
  3. YOGRAJ GUGGULU /05859201/ [Interacting]
     Indication: BACK PAIN
     Dates: start: 20060501
  4. SERTRALINE HCL [Suspect]
     Indication: DEPRESSION
     Dosage: MAINTENANCE DOSE OF 50MG

REACTIONS (2)
  - DEPRESSION [None]
  - DRUG INTERACTION [None]
